FAERS Safety Report 4886017-1 (Version None)
Quarter: 2006Q1

REPORT INFORMATION
  Report Type: 
  Country: None (occurrence: None)
  Receive Date: 20060118
  Receipt Date: 20060118
  Transmission Date: 20060701
  Serious: Yes (Hospitalization)
  Sender: FDA-Public Use
  Company Number: None

PATIENT
  Age: 62 Year
  Sex: Female
  Weight: 44.7 kg

DRUGS (2)
  1. AVASTIN [Suspect]
     Indication: NON-SMALL CELL LUNG CANCER
     Dosage: 15MG/KG IV Q 3 WKS
     Route: 042
     Dates: start: 20051221
  2. ERLOTINIB [Suspect]
     Dosage: 150 MG DAILY ORAL
     Route: 048
     Dates: start: 20051221, end: 20060110

REACTIONS (1)
  - PLEURAL EFFUSION [None]
